FAERS Safety Report 9677538 (Version 2)
Quarter: 2013Q4

REPORT INFORMATION
  Report Type: Spontaneous
  Country: JP (occurrence: JP)
  Receive Date: 20131108
  Receipt Date: 20131226
  Transmission Date: 20140711
  Serious: Yes (Death, Hospitalization)
  Sender: FDA-Public Use
  Company Number: JP-ELI_LILLY_AND_COMPANY-JP201310009110

PATIENT
  Age: 49 Year
  Sex: Male

DRUGS (3)
  1. GEMZAR [Suspect]
     Indication: PANCREATIC CARCINOMA
     Dosage: UNK
     Route: 042
     Dates: start: 201305
  2. GEMZAR [Suspect]
     Dosage: 1400 MG, UNK
     Route: 042
     Dates: start: 201310, end: 20131204
  3. TEGAFUR [Concomitant]
     Indication: PANCREATIC CARCINOMA
     Dosage: 120 MG, UNK
     Route: 048
     Dates: start: 201305, end: 201310

REACTIONS (1)
  - Pulmonary embolism [Fatal]
